FAERS Safety Report 25435979 (Version 3)
Quarter: 2025Q3

REPORT INFORMATION
  Report Type: Report from Study
  Country: MX (occurrence: MX)
  Receive Date: 20250613
  Receipt Date: 20250802
  Transmission Date: 20251020
  Serious: Yes (Other)
  Sender: ALEXION PHARMACEUTICALS
  Company Number: MX-AstraZeneca-CH-00888417A

PATIENT
  Age: 78 Year
  Sex: Female
  Weight: 78 kg

DRUGS (11)
  1. OLAPARIB [Suspect]
     Active Substance: OLAPARIB
     Dosage: 300 MILLIGRAM, BID
     Dates: start: 2020, end: 20250616
  2. OLAPARIB [Suspect]
     Active Substance: OLAPARIB
     Dosage: 300 MILLIGRAM, BID
     Dates: start: 20250616
  3. XARELTO [Concomitant]
     Active Substance: RIVAROXABAN
     Indication: Deep vein thrombosis
     Dosage: 10 MILLIGRAM, QD
  4. ACETAMINOPHEN [Concomitant]
     Active Substance: ACETAMINOPHEN
     Indication: Osteoarthritis
  5. Indaflex [Concomitant]
     Dosage: UNK UNK, QD
  6. Axiras [Concomitant]
     Indication: Peripheral swelling
     Dosage: UNK UNK, QD
     Dates: start: 20250601
  7. INSULIN NOS [Concomitant]
     Active Substance: INSULIN NOS
  8. METFORMIN HYDROCHLORIDE [Concomitant]
     Active Substance: METFORMIN HYDROCHLORIDE
     Indication: Diabetes mellitus
     Dosage: 850 MILLIGRAM, QD
  9. JANUMET [Concomitant]
     Active Substance: METFORMIN HYDROCHLORIDE\SITAGLIPTIN PHOSPHATE
     Indication: Diabetes mellitus
     Dosage: 50 MG/ 500 MG, QD
     Dates: start: 2023
  10. NEXIUM [Concomitant]
     Active Substance: ESOMEPRAZOLE MAGNESIUM
     Indication: Gastrointestinal disorder
     Dosage: 40 MILLIGRAM, QD
     Dates: start: 2017
  11. DIETARY SUPPLEMENT [Concomitant]
     Active Substance: DIETARY SUPPLEMENT
     Dosage: 10 GRAM, QD
     Dates: start: 20250605

REACTIONS (7)
  - Thrombosis [Recovered/Resolved]
  - Phlebitis [Recovered/Resolved]
  - Osteoarthritis [Not Recovered/Not Resolved]
  - Peripheral swelling [Recovering/Resolving]
  - Cartilage injury [Not Recovered/Not Resolved]
  - Expired product administered [Unknown]
  - Product dispensing error [Unknown]

NARRATIVE: CASE EVENT DATE: 20201230
